FAERS Safety Report 6523011-9 (Version None)
Quarter: 2009Q4

REPORT INFORMATION
  Report Type: 
  Country: None (occurrence: None)
  Receive Date: 20091230
  Receipt Date: 20091221
  Transmission Date: 20100525
  Serious: Yes (Life-Threatening)
  Sender: FDA-Public Use
  Company Number: JP-ABBOTT-09P-087-0595657-00

PATIENT
  Sex: Female
  Weight: 47.6 kg

DRUGS (4)
  1. CLARITHROMYCIN [Suspect]
     Indication: BRONCHITIS
     Route: 048
     Dates: start: 20090824, end: 20090827
  2. UNIPHYL LA [Concomitant]
     Indication: BRONCHITIS
     Route: 048
     Dates: start: 20090824, end: 20090827
  3. MUCOSAL-L [Concomitant]
     Indication: BRONCHITIS
     Route: 048
     Dates: start: 20090824, end: 20090827
  4. HOKUNALIN [Concomitant]
     Indication: BRONCHITIS
     Route: 062
     Dates: start: 20090824, end: 20090827

REACTIONS (2)
  - CARDIAC ARREST [None]
  - VENTRICULAR FIBRILLATION [None]
